FAERS Safety Report 6422002-6 (Version None)
Quarter: 2009Q4

REPORT INFORMATION
  Report Type: 
  Country: None (occurrence: None)
  Receive Date: 20091030
  Receipt Date: 20091019
  Transmission Date: 20100525
  Serious: Yes (Hospitalization, Other)
  Sender: FDA-Public Use
  Company Number: US-ELI_LILLY_AND_COMPANY-US200910004772

PATIENT
  Sex: Female

DRUGS (6)
  1. CYMBALTA [Suspect]
     Indication: PAIN
     Dosage: 60 MG, DAILY (1/D)
     Dates: start: 20050801, end: 20080601
  2. ZOCOR [Concomitant]
     Dosage: 40 MG, UNK
  3. SYNTHROID [Concomitant]
     Dosage: 175 UG, UNK
  4. ALDACTONE [Concomitant]
  5. LOMOTIL [Concomitant]
  6. XANAX [Concomitant]

REACTIONS (9)
  - AUTOIMMUNE HEPATITIS [None]
  - DIABETES MELLITUS [None]
  - FATIGUE [None]
  - HAEMORRHAGE [None]
  - JAUNDICE [None]
  - MALAISE [None]
  - OFF LABEL USE [None]
  - PULMONARY EMBOLISM [None]
  - UPPER LIMB FRACTURE [None]
